FAERS Safety Report 5377600-8 (Version None)
Quarter: 2007Q3

REPORT INFORMATION
  Report Type: 
  Country: None (occurrence: None)
  Receive Date: 20070703
  Receipt Date: 20070625
  Transmission Date: 20080115
  Serious: Yes (Death)
  Sender: FDA-Public Use
  Company Number: US-PFIZER INC-2007014280

PATIENT
  Sex: Male

DRUGS (1)
  1. DIFLUCAN [Suspect]

REACTIONS (2)
  - DEATH [None]
  - DRUG INEFFECTIVE [None]
